FAERS Safety Report 6048256-6 (Version None)
Quarter: 2009Q1

REPORT INFORMATION
  Report Type: 
  Country: None (occurrence: None)
  Receive Date: 20090123
  Receipt Date: 20090115
  Transmission Date: 20090719
  Serious: Yes (Other)
  Sender: FDA-Public Use
  Company Number: US-JNJFOC-20090103853

PATIENT
  Age: 83 Year
  Sex: Male
  Weight: 72.58 kg

DRUGS (9)
  1. TYLENOL (CAPLET) [Suspect]
     Route: 048
  2. TYLENOL (CAPLET) [Suspect]
     Indication: BACK PAIN
     Route: 048
  3. VERAPAMIL [Concomitant]
     Indication: HYPERTENSION
  4. HYZAAR [Concomitant]
     Indication: HYPERTENSION
     Dosage: 50-12.5, ONCE DAILY
  5. GLUCOSAMINE [Concomitant]
  6. MULTI-VITAMIN [Concomitant]
  7. LOVAZA [Concomitant]
  8. ASPIRIN [Concomitant]
     Indication: PROPHYLAXIS
  9. XANAX [Concomitant]
     Indication: ANXIETY

REACTIONS (3)
  - BLOOD PRESSURE INCREASED [None]
  - CHEST PAIN [None]
  - HEART RATE INCREASED [None]
